FAERS Safety Report 7750341-5 (Version None)
Quarter: 2011Q3

REPORT INFORMATION
  Report Type: 
  Country: None (occurrence: None)
  Receive Date: 20110914
  Receipt Date: 20110905
  Transmission Date: 20111222
  Serious: Yes (Hospitalization)
  Sender: FDA-Public Use
  Company Number: FR-NOVOPROD-334596

PATIENT

DRUGS (10)
  1. ASPIRIN [Concomitant]
     Dosage: UNK
     Route: 048
  2. BISOPROLOL FUMARATE [Concomitant]
     Dosage: 10 MG, QD
     Route: 048
  3. LEVOTHYROXINE SODIUM [Concomitant]
     Dosage: UNK
     Route: 048
  4. XYZAL [Concomitant]
  5. REPAGLINIDE [Suspect]
     Indication: TYPE 2 DIABETES MELLITUS
     Dosage: UNK
     Route: 065
     Dates: end: 20110519
  6. IALUSET [Concomitant]
  7. DIAMICRON [Concomitant]
  8. PLAVIX [Concomitant]
     Dosage: UNK
     Route: 048
  9. GALVUS [Concomitant]
     Dates: end: 20110519
  10. MEMANTINE HYDROCHLORIDE [Concomitant]
     Dosage: UNK
     Route: 048

REACTIONS (2)
  - HYPOTENSION [None]
  - HYPOGLYCAEMIA [None]
